FAERS Safety Report 9406828 (Version 1)
Quarter: 2013Q3

REPORT INFORMATION
  Report Type: Spontaneous
  Country: FR (occurrence: FR)
  Receive Date: 20130718
  Receipt Date: 20130718
  Transmission Date: 20140515
  Serious: Yes (Other)
  Sender: FDA-Public Use
  Company Number: PHHY2013FR074490

PATIENT
  Age: 47 Year
  Sex: Female

DRUGS (1)
  1. FEMARA [Suspect]
     Dosage: UNK UKN, UNK
     Route: 048
     Dates: start: 201109, end: 20121119

REACTIONS (1)
  - Subacute cutaneous lupus erythematosus [Recovered/Resolved]
